FAERS Safety Report 23709420 (Version 3)
Quarter: 2024Q2

REPORT INFORMATION
  Report Type: Spontaneous
  Country: US (occurrence: US)
  Receive Date: 20240404
  Receipt Date: 20240523
  Transmission Date: 20240716
  Serious: Yes (Hospitalization, Disabling, Other)
  Sender: FDA-Public Use
  Company Number: US-002147023-NVSC2024US072400

PATIENT
  Sex: Male

DRUGS (2)
  1. LUTATHERA [Suspect]
     Active Substance: LUTETIUM OXODOTREOTIDE LU-177
     Indication: Product used for unknown indication
     Dosage: UNK (200)
     Route: 042
     Dates: start: 20231214
  2. LUTATHERA [Suspect]
     Active Substance: LUTETIUM OXODOTREOTIDE LU-177
     Dosage: UNK (150)
     Route: 042
     Dates: start: 20240209

REACTIONS (4)
  - General physical health deterioration [Not Recovered/Not Resolved]
  - Failure to thrive [Unknown]
  - Asthenia [Unknown]
  - Hypophagia [Unknown]
